FAERS Safety Report 6265325-6 (Version None)
Quarter: 2009Q3

REPORT INFORMATION
  Report Type: 
  Country: None (occurrence: None)
  Receive Date: 20090713
  Receipt Date: 20090702
  Transmission Date: 20100115
  Serious: Yes (Hospitalization)
  Sender: FDA-Public Use
  Company Number: US-BAYER-200925856NA

PATIENT
  Age: 45 Year
  Sex: Female
  Weight: 64 kg

DRUGS (3)
  1. SORAFENIB OR PLACEBO [Suspect]
     Indication: BREAST CANCER METASTATIC
     Dosage: TOTAL DAILY DOSE: 800 MG  UNIT DOSE: 200 MG
     Route: 048
     Dates: start: 20090609, end: 20090618
  2. GEMZAR [Suspect]
     Indication: BREAST CANCER METASTATIC
     Dosage: UNIT DOSE: 1000 MG/M2
     Route: 042
     Dates: start: 20090609, end: 20090616
  3. GEMZAR [Suspect]
     Dosage: UNIT DOSE: 750 MG/M2
     Route: 042
     Dates: start: 20090616, end: 20090616

REACTIONS (1)
  - BREAST CELLULITIS [None]
